FAERS Safety Report 7896653-6 (Version None)
Quarter: 2011Q4

REPORT INFORMATION
  Report Type: 
  Country: None (occurrence: None)
  Receive Date: 20111107
  Receipt Date: 20111027
  Transmission Date: 20120403
  Serious: No
  Sender: FDA-Public Use
  Company Number: US-BIOGENIDEC-2011BI024875

PATIENT
  Age: 53 Year
  Sex: Female

DRUGS (5)
  1. FIORICET [Concomitant]
     Indication: HEADACHE
  2. KLONOPIN [Concomitant]
     Indication: BONE PAIN
  3. KLONOPIN [Concomitant]
     Indication: MUSCLE SPASMS
  4. TYSABRI [Suspect]
     Indication: MULTIPLE SCLEROSIS
     Route: 042
     Dates: start: 20110630
  5. ATIVAN [Concomitant]
     Indication: SLEEP DISORDER

REACTIONS (23)
  - CHEST X-RAY ABNORMAL [None]
  - DYSPNOEA [None]
  - DECREASED APPETITE [None]
  - TREMOR [None]
  - ANAEMIA [None]
  - VERTIGO [None]
  - GAIT DISTURBANCE [None]
  - AMNESIA [None]
  - PAIN IN EXTREMITY [None]
  - FATIGUE [None]
  - HAEMATOCRIT DECREASED [None]
  - BONE PAIN [None]
  - DYSGEUSIA [None]
  - FALL [None]
  - HEAD INJURY [None]
  - HAEMOGLOBIN DECREASED [None]
  - WHITE BLOOD CELL COUNT DECREASED [None]
  - ENTERITIS INFECTIOUS [None]
  - PARAESTHESIA [None]
  - ASTHENIA [None]
  - COUGH [None]
  - THROAT IRRITATION [None]
  - DRUG INEFFECTIVE [None]
